FAERS Safety Report 6395966-7 (Version None)
Quarter: 2009Q4

REPORT INFORMATION
  Report Type: 
  Country: None (occurrence: None)
  Receive Date: 20091009
  Receipt Date: 20091002
  Transmission Date: 20100525
  Serious: Yes (Life-Threatening, Hospitalization)
  Sender: FDA-Public Use
  Company Number: PHHY2009DE34952

PATIENT
  Sex: Male
  Weight: 88.3 kg

DRUGS (15)
  1. CERTICAN [Suspect]
     Dosage: 0.75 MG, BID
     Route: 048
     Dates: start: 20090709, end: 20090712
  2. CERTICAN [Suspect]
     Dosage: 1.5 MG, BID
     Route: 048
     Dates: end: 20090712
  3. BENAZEPRIL HYDROCHLORIDE [Suspect]
     Indication: CARDIAC FAILURE
     Dosage: 2.5 MG, BID
  4. ALNA [Concomitant]
     Dosage: 0.4 MG/DAY
     Route: 048
  5. PREDNISON [Concomitant]
     Indication: RENAL TRANSPLANT
     Dosage: 5 MG/DAY
     Route: 048
  6. DIGIMERCK [Concomitant]
     Indication: ATRIAL FIBRILLATION
     Dosage: 0.05 MG/DAY
     Route: 048
  7. BELOC ZOK [Concomitant]
     Indication: ATRIAL FIBRILLATION
     Dosage: 23.75 MG, BID
     Route: 048
  8. ADVAGRAF [Concomitant]
     Dosage: 6 MG/DAY
     Route: 048
  9. TORSEMIDE [Concomitant]
     Indication: RENAL FAILURE
     Dosage: 40 MG (ONCE DAILY MORNING)
  10. XIPAMIDE [Concomitant]
     Indication: RENAL FAILURE
     Dosage: 20 MG (ONCE DAILY) MORNING
  11. PANTOZOL [Concomitant]
     Dosage: 40 MG (ONCE DAILY) EVENING
  12. FERRO-FOLSAN [Concomitant]
     Indication: ANAEMIA
     Dosage: 100 MG (ONCE DAILY, MORNING)
  13. ACTRAPID HUMAN [Concomitant]
     Indication: DIABETES MELLITUS
  14. PROTAPHANE [Concomitant]
  15. MARCUMAR [Concomitant]
     Indication: ATRIAL FIBRILLATION

REACTIONS (7)
  - ANAEMIA [None]
  - BLOOD CREATININE INCREASED [None]
  - C-REACTIVE PROTEIN INCREASED [None]
  - EPIGLOTTIC OEDEMA [None]
  - LEUKOPENIA [None]
  - OEDEMA MOUTH [None]
  - SWOLLEN TONGUE [None]
